FAERS Safety Report 8124372-X (Version None)
Quarter: 2012Q1

REPORT INFORMATION
  Report Type: 
  Country: None (occurrence: None)
  Receive Date: 20120209
  Receipt Date: 20120203
  Transmission Date: 20120608
  Serious: Yes (Other)
  Sender: FDA-Public Use
  Company Number: JP-JNJFOC-20120110226

PATIENT
  Sex: Male

DRUGS (2)
  1. MINOXIDIL [Suspect]
     Route: 061
  2. MINOXIDIL [Suspect]
     Indication: ANDROGENETIC ALOPECIA
     Route: 061
     Dates: start: 20111101, end: 20111201

REACTIONS (2)
  - ASPARTATE AMINOTRANSFERASE INCREASED [None]
  - ALANINE AMINOTRANSFERASE INCREASED [None]
